FAERS Safety Report 15843253 (Version 1)
Quarter: 2019Q1

REPORT INFORMATION
  Report Type: Spontaneous
  Country: US (occurrence: US)
  Receive Date: 20190118
  Receipt Date: 20190118
  Transmission Date: 20190417
  Serious: No
  Sender: FDA-Public Use
  Company Number: None

PATIENT
  Age: 65 Year
  Sex: Female
  Weight: 51.3 kg

DRUGS (4)
  1. MEROPENEM. [Suspect]
     Active Substance: MEROPENEM
     Indication: MYCOBACTERIUM ABSCESSUS INFECTION
     Route: 040
     Dates: start: 20180818, end: 20181219
  2. AVYCAZ [Suspect]
     Active Substance: AVIBACTAM SODIUM\CEFTAZIDIME
     Indication: MYCOBACTERIUM ABSCESSUS INFECTION
     Route: 040
     Dates: start: 20181216, end: 20190111
  3. MEROPENEM. [Suspect]
     Active Substance: MEROPENEM
     Indication: LUNG INFECTION
     Route: 040
     Dates: start: 20180818, end: 20181219
  4. AVYCAZ [Suspect]
     Active Substance: AVIBACTAM SODIUM\CEFTAZIDIME
     Indication: LUNG INFECTION
     Route: 040
     Dates: start: 20181216, end: 20190111

REACTIONS (1)
  - Transaminases increased [None]

NARRATIVE: CASE EVENT DATE: 20181217
